FAERS Safety Report 25142900 (Version 3)
Quarter: 2025Q2

REPORT INFORMATION
  Report Type: Report from Study
  Country: US (occurrence: US)
  Receive Date: 20250401
  Receipt Date: 20250502
  Transmission Date: 20250717
  Serious: No
  Sender: ABBVIE
  Company Number: US-ABBVIE-6199475

PATIENT
  Age: 53 Year
  Sex: Male
  Weight: 99.79 kg

DRUGS (1)
  1. RINVOQ [Suspect]
     Active Substance: UPADACITINIB
     Indication: Colitis ulcerative
     Dosage: FORM STRENGTH: 30 MG
     Route: 048
     Dates: start: 20241214

REACTIONS (6)
  - Abdominal distension [Recovering/Resolving]
  - Colitis ulcerative [Not Recovered/Not Resolved]
  - Gastrointestinal pain [Unknown]
  - Micturition urgency [Recovering/Resolving]
  - Dysuria [Unknown]
  - Urinary incontinence [Unknown]

NARRATIVE: CASE EVENT DATE: 20240201
